FAERS Safety Report 22517383 (Version 2)
Quarter: 2023Q2

REPORT INFORMATION
  Report Type: Spontaneous
  Country: US (occurrence: None)
  Receive Date: 20230603
  Receipt Date: 20230603
  Transmission Date: 20230722
  Serious: Yes (Death, Hospitalization, Other)
  Sender: FDA-Public Use
  Company Number: US-Unichem Pharmaceuticals (USA) Inc-UCM202305-000643

PATIENT
  Age: 45 Year
  Sex: Female

DRUGS (8)
  1. DIVALPROEX SODIUM [Suspect]
     Active Substance: DIVALPROEX SODIUM
     Indication: Trigeminal neuralgia
     Dosage: UNKNOWN
  2. BACLOFEN [Suspect]
     Active Substance: BACLOFEN
     Indication: Trigeminal neuralgia
     Dosage: UNKNOWN
  3. TOPIRAMATE [Suspect]
     Active Substance: TOPIRAMATE
     Indication: Trigeminal neuralgia
     Dosage: UNKNOWN
  4. TIZANIDINE [Suspect]
     Active Substance: TIZANIDINE
     Indication: Trigeminal neuralgia
     Dosage: UNKNOWN
  5. CARBAMAZEPINE [Suspect]
     Active Substance: CARBAMAZEPINE
     Indication: Trigeminal neuralgia
     Dosage: UNKNOWN
  6. DULOXETINE [Concomitant]
     Active Substance: DULOXETINE
     Indication: Trigeminal neuralgia
     Dosage: UNKNOWN
  7. GABAPENTIN [Concomitant]
     Active Substance: GABAPENTIN
     Indication: Trigeminal neuralgia
     Dosage: UNKNOWN
  8. OXCARBAZEPINE [Concomitant]
     Active Substance: OXCARBAZEPINE
     Indication: Trigeminal neuralgia
     Dosage: UNKNOWN

REACTIONS (11)
  - Spontaneous bacterial peritonitis [Fatal]
  - Acute kidney injury [Fatal]
  - Septic shock [Fatal]
  - Acute respiratory failure [Fatal]
  - Anaemia macrocytic [Fatal]
  - Drug reaction with eosinophilia and systemic symptoms [Unknown]
  - Hepatic encephalopathy [Fatal]
  - Drug-induced liver injury [Recovering/Resolving]
  - Drug ineffective for unapproved indication [Unknown]
  - Drug ineffective [Unknown]
  - Product use in unapproved indication [Unknown]
